FAERS Safety Report 8516483-1 (Version None)
Quarter: 2012Q3

REPORT INFORMATION
  Report Type: 
  Country: None (occurrence: None)
  Receive Date: 20120718
  Receipt Date: 20120717
  Transmission Date: 20120928
  Serious: No
  Sender: FDA-Public Use
  Company Number: US-PFIZER INC-2012172596

PATIENT
  Sex: Male

DRUGS (2)
  1. CHANTIX [Suspect]
     Dosage: 1 MG, 2X/DAY
     Dates: start: 20120101
  2. CHANTIX [Suspect]
     Dosage: UNK
     Dates: start: 20120101, end: 20120101

REACTIONS (2)
  - ABDOMINAL DISCOMFORT [None]
  - RENAL DISORDER [None]
